FAERS Safety Report 15712216 (Version 1)
Quarter: 2018Q4

REPORT INFORMATION
  Report Type: Spontaneous
  Country: US (occurrence: US)
  Receive Date: 20181128
  Receipt Date: 20181128
  Transmission Date: 20190205
  Serious: Yes (Hospitalization)
  Sender: FDA-Public Use
  Company Number: None

PATIENT
  Age: 68 Year
  Sex: Male

DRUGS (6)
  1. TRETINOIN 10 MG CAP [Suspect]
     Active Substance: TRETINOIN
     Indication: ACUTE PROMYELOCYTIC LEUKAEMIA
     Route: 048
     Dates: start: 20180720
  2. RAMIPRIL. [Concomitant]
     Active Substance: RAMIPRIL
  3. DIPHENHYDRAMINE. [Concomitant]
     Active Substance: DIPHENHYDRAMINE
  4. ACYCLOVIR. [Concomitant]
     Active Substance: ACYCLOVIR
  5. ATORVASTATIN [Concomitant]
     Active Substance: ATORVASTATIN
  6. MULTIVITAMIN [Concomitant]
     Active Substance: VITAMINS

REACTIONS (1)
  - Vascular device infection [None]

NARRATIVE: CASE EVENT DATE: 201811
